FAERS Safety Report 5877752 (Version 6)
Quarter: 2019Q3

REPORT INFORMATION
  Report Type: Spontaneous
  Country: IT (occurrence: IT)
  Receive Date: 20050914
  Receipt Date: 20190919
  Transmission Date: 20191005
  Serious: Yes (Death, Hospitalization, Other)
  Sender: FDA-Public Use
  Company Number: IT-JNJFOC-20050900668

PATIENT
  Age: 81 Year
  Sex: Female

DRUGS (6)
  1. MINIAS [Concomitant]
     Active Substance: LORMETAZEPAM
     Indication: DEPRESSION
     Route: 048
     Dates: start: 20050617, end: 20050617
  2. REMINYL [Suspect]
     Active Substance: GALANTAMINE
     Indication: DEMENTIA ALZHEIMER^S TYPE
     Route: 048
     Dates: start: 20050304, end: 20050602
  3. ESCITALOPRAM [Concomitant]
     Active Substance: ESCITALOPRAM OXALATE
     Route: 065
  4. ENTACT [Concomitant]
     Active Substance: ESCITALOPRAM OXALATE
     Indication: UNEVALUABLE EVENT
     Route: 048
  5. GLIBOMET [Suspect]
     Active Substance: GLYBURIDE\METFORMIN HYDROCHLORIDE
     Indication: DIABETES MELLITUS
     Dosage: 1 DOSE = 1 UNIT
     Route: 048
     Dates: start: 20050304, end: 20050617
  6. CARDIOASPIRIN [Suspect]
     Active Substance: ASPIRIN
     Indication: UNEVALUABLE EVENT
     Route: 048
     Dates: start: 20050304, end: 20050617

REACTIONS (6)
  - Dyspnoea [Not Recovered/Not Resolved]
  - Apnoea [Not Recovered/Not Resolved]
  - Death [Fatal]
  - Confusional state [Not Recovered/Not Resolved]
  - Seizure [Not Recovered/Not Resolved]
  - Fall [Not Recovered/Not Resolved]

NARRATIVE: CASE EVENT DATE: 20050401
